FAERS Safety Report 4274013-7 (Version None)
Quarter: 2004Q1

REPORT INFORMATION
  Report Type: 
  Country: None (occurrence: None)
  Receive Date: 20040115
  Receipt Date: 20040105
  Transmission Date: 20041129
  Serious: Yes (Hospitalization, Other)
  Sender: FDA-Public Use
  Company Number: STA-AE-03-MTX-170

PATIENT
  Age: 71 Year
  Sex: Female

DRUGS (4)
  1. RHEUMATREX [Suspect]
     Indication: RHEUMATOID ARTHRITIS
     Dosage: 4MG 1X PER 1 WK, ORAL
     Route: 048
     Dates: start: 20030312, end: 20030725
  2. OSTELUC (ETODOLC) [Concomitant]
  3. NEUROTROPIN (ORFAN LYSATE, STANDARDIZED) [Concomitant]
  4. SHIOSOL (SODIUM AUROTHIUIOMALATE) [Concomitant]

REACTIONS (2)
  - INTERSTITIAL LUNG DISEASE [None]
  - PNEUMONIA [None]
